FAERS Safety Report 13175216 (Version 1)
Quarter: 2017Q1

REPORT INFORMATION
  Report Type: Spontaneous
  Country: KR (occurrence: KR)
  Receive Date: 20170201
  Receipt Date: 20170201
  Transmission Date: 20170428
  Serious: Yes (Disabling, Other)
  Sender: FDA-Public Use
  Company Number: KR-009507513-1701KOR011792

PATIENT
  Sex: Male

DRUGS (2)
  1. VYTORIN [Suspect]
     Active Substance: EZETIMIBE\SIMVASTATIN
     Dosage: UNK
     Route: 048
     Dates: start: 2015
  2. VYTORIN [Suspect]
     Active Substance: EZETIMIBE\SIMVASTATIN
     Dosage: UNK
     Route: 048
     Dates: start: 2009, end: 2011

REACTIONS (3)
  - Myalgia [Unknown]
  - Spinal column stenosis [Unknown]
  - Nightmare [Unknown]

NARRATIVE: CASE EVENT DATE: 201612
